FAERS Safety Report 6708583-3 (Version None)
Quarter: 2010Q2

REPORT INFORMATION
  Report Type: 
  Country: None (occurrence: None)
  Receive Date: 20100503
  Receipt Date: 20100426
  Transmission Date: 20101027
  Serious: Yes (Hospitalization)
  Sender: FDA-Public Use
  Company Number: FR-BRISTOL-MYERS SQUIBB COMPANY-15081318

PATIENT
  Age: 79 Year
  Sex: Female

DRUGS (15)
  1. COUMADIN [Suspect]
     Indication: ATRIAL FIBRILLATION
     Dosage: 1DF=1 TABLET OR 3/4 OF A TABLET ORALLY PER DAY
     Route: 048
  2. KARDEGIC [Concomitant]
     Dosage: 1DF=160 UNITS NOS
  3. INIPOMP [Concomitant]
     Dosage: 1DF=20 UNITS NOS
  4. TAHOR [Concomitant]
     Dosage: 1DF=20 UNITS NOS
  5. CARDENSIEL [Concomitant]
     Dosage: 1DF=3.75 UNITS NOS
  6. CITALOPRAM HYDROBROMIDE [Concomitant]
     Dosage: 1DF=10 UNITS NOS
  7. DILTIAZEM [Concomitant]
     Dosage: MONO-TILDIEM 200 SR 1DF=200 UNITS NOS
  8. DIFFU-K [Concomitant]
     Dosage: DF= TAB
  9. SERETIDE [Concomitant]
  10. LASIX [Concomitant]
     Dosage: 1DF=40 UNITS NOS
  11. ATARAX [Concomitant]
     Dosage: 1DF=25 UNITS NOS
  12. AERIUS [Concomitant]
     Dosage: 1DF=100 UNITS NOS
  13. PRIMPERAN [Concomitant]
     Dosage: 1 AMPULE IF NEEDED
  14. PENICILLIN G [Concomitant]
     Dosage: PENICILLIN G 4MIU
  15. ROCEPHIN [Concomitant]
     Route: 042

REACTIONS (7)
  - ACCIDENTAL OVERDOSE [None]
  - DEPRESSION [None]
  - DISTURBANCE IN ATTENTION [None]
  - EXTRAPYRAMIDAL DISORDER [None]
  - INTERNATIONAL NORMALISED RATIO INCREASED [None]
  - RENAL FAILURE ACUTE [None]
  - SEPSIS [None]
